FAERS Safety Report 15928360 (Version 1)
Quarter: 2019Q1

REPORT INFORMATION
  Report Type: Spontaneous
  Country: CN (occurrence: CN)
  Receive Date: 20190206
  Receipt Date: 20190206
  Transmission Date: 20190417
  Serious: Yes (Hospitalization)
  Sender: FDA-Public Use
  Company Number: CN-PFIZER INC-2019053453

PATIENT
  Age: 14 Year
  Sex: Male

DRUGS (1)
  1. MEPEM [Suspect]
     Active Substance: MEROPENEM
     Indication: SYSTEMIC LUPUS ERYTHEMATOSUS
     Dosage: 0.5 G, DAILY(0.5G WAS DISSOLVED IN 0.9% SODIUM CHLORIDE)
     Route: 041
     Dates: start: 20181205, end: 20181210

REACTIONS (3)
  - Platelet count decreased [Recovering/Resolving]
  - Red blood cell count decreased [Recovering/Resolving]
  - White blood cell count decreased [Recovering/Resolving]

NARRATIVE: CASE EVENT DATE: 20181210
